FAERS Safety Report 6528272-8 (Version None)
Quarter: 2010Q1

REPORT INFORMATION
  Report Type: 
  Country: None (occurrence: None)
  Receive Date: 20100106
  Receipt Date: 20091228
  Transmission Date: 20100710
  Serious: Yes (Hospitalization, Other)
  Sender: FDA-Public Use
  Company Number: US-JNJFOC-20091207389

PATIENT
  Sex: Male

DRUGS (2)
  1. INVEGA SUSTENNA [Suspect]
     Indication: SCHIZOPHRENIA
     Route: 030
     Dates: start: 20091001
  2. ZYPREXA [Concomitant]
     Indication: SCHIZOPHRENIA
     Dates: start: 20091001

REACTIONS (2)
  - ANGER [None]
  - DELUSION [None]
